FAERS Safety Report 16472262 (Version 1)
Quarter: 2019Q2

REPORT INFORMATION
  Report Type: Spontaneous
  Country: IT (occurrence: IT)
  Receive Date: 20190625
  Receipt Date: 20190625
  Transmission Date: 20190711
  Serious: Yes (Other)
  Sender: FDA-Public Use
  Company Number: IT-ACCORD-134810

PATIENT
  Age: 76 Year
  Sex: Female

DRUGS (2)
  1. FLUOROURACIL HIKMA [Suspect]
     Active Substance: FLUOROURACIL
     Indication: GASTRIC CANCER
     Dosage: STRENGTH: 50 MG / ML, SOLUTION FOR INJECTION FOR INFUSION
     Route: 042
     Dates: start: 20190426, end: 20190426
  2. OXALIPLATIN ACCORD [Suspect]
     Active Substance: OXALIPLATIN
     Indication: GASTRIC CANCER
     Dosage: STRENGTH: 5 MG / ML
     Route: 042
     Dates: start: 20190426, end: 20190426

REACTIONS (1)
  - Breast enlargement [Not Recovered/Not Resolved]

NARRATIVE: CASE EVENT DATE: 20190426
